FAERS Safety Report 4583574-X (Version None)
Quarter: 2005Q1

REPORT INFORMATION
  Report Type: 
  Country: None (occurrence: None)
  Receive Date: 20050211
  Receipt Date: 20050126
  Transmission Date: 20050727
  Serious: Yes (Hospitalization)
  Sender: FDA-Public Use
  Company Number: DSA_25745_2005

PATIENT
  Age: 4 Year
  Sex: Male

DRUGS (1)
  1. TAVOR [Suspect]
     Dosage: 12 MG ONCE PO
     Route: 048
     Dates: start: 20050122, end: 20050122

REACTIONS (3)
  - ACCIDENTAL OVERDOSE [None]
  - DIZZINESS [None]
  - MYDRIASIS [None]
